FAERS Safety Report 5465788-X (Version None)
Quarter: 2007Q3

REPORT INFORMATION
  Report Type: 
  Country: None (occurrence: None)
  Receive Date: 20070924
  Receipt Date: 20070919
  Transmission Date: 20080115
  Serious: Yes (Other)
  Sender: FDA-Public Use
  Company Number: B0488233A

PATIENT
  Sex: Female

DRUGS (2)
  1. LAMICTAL [Suspect]
     Indication: DEPRESSION
     Route: 065
     Dates: start: 20040101
  2. SERTRALINE [Concomitant]
     Indication: DEPRESSION
     Route: 065

REACTIONS (11)
  - ANXIETY [None]
  - DIZZINESS [None]
  - EYE PAIN [None]
  - FEELING OF BODY TEMPERATURE CHANGE [None]
  - HYPOAESTHESIA [None]
  - IMPAIRED DRIVING ABILITY [None]
  - LOSS OF CONSCIOUSNESS [None]
  - NAUSEA [None]
  - PAIN IN EXTREMITY [None]
  - PANIC REACTION [None]
  - TENSION HEADACHE [None]
